FAERS Safety Report 14784449 (Version 4)
Quarter: 2018Q3

REPORT INFORMATION
  Report Type: Spontaneous
  Country: DE (occurrence: DE)
  Receive Date: 20180420
  Receipt Date: 20180919
  Transmission Date: 20181010
  Serious: Yes (Hospitalization, Other)
  Sender: FDA-Public Use
  Company Number: DE-REGENERON PHARMACEUTICALS, INC.-2018-21821

PATIENT

DRUGS (4)
  1. POVIDONE IOD [Concomitant]
     Indication: PRODUCT USED FOR UNKNOWN INDICATION
  2. OCTENISEPT                         /00972101/ [Concomitant]
     Indication: PRODUCT USED FOR UNKNOWN INDICATION
  3. EYLEA [Suspect]
     Active Substance: AFLIBERCEPT
     Dosage: 0.05 ML, ONCE, RIGHT EYE
     Route: 031
     Dates: start: 20171204, end: 20171204
  4. EYLEA [Suspect]
     Active Substance: AFLIBERCEPT
     Indication: NEOVASCULAR AGE-RELATED MACULAR DEGENERATION
     Dosage: 0.05 ML, ONCE, RIGHT EYE
     Route: 031

REACTIONS (10)
  - Wrong technique in product usage process [Unknown]
  - Vitreal cells [Recovered/Resolved]
  - Photopsia [Recovered/Resolved]
  - Visual impairment [Recovered/Resolved]
  - Blindness unilateral [Unknown]
  - Endophthalmitis [Recovered/Resolved]
  - Cyclitis [Unknown]
  - Exfoliation syndrome [Unknown]
  - Deposit eye [Unknown]
  - Cataract [Unknown]

NARRATIVE: CASE EVENT DATE: 20171213
